FAERS Safety Report 6022381-8 (Version None)
Quarter: 2008Q4

REPORT INFORMATION
  Report Type: 
  Country: None (occurrence: None)
  Receive Date: 20081223
  Receipt Date: 20081223
  Transmission Date: 20090506
  Serious: Yes (Hospitalization)
  Sender: FDA-Public Use
  Company Number: None

PATIENT
  Sex: Male
  Weight: 99.79 kg

DRUGS (1)
  1. ANCEF [Suspect]
     Indication: POSTOPERATIVE CARE
     Dosage: 1 GRAM Q8HRS IV
     Route: 042
     Dates: start: 20081219, end: 20081220

REACTIONS (1)
  - CLOSTRIDIAL INFECTION [None]
